FAERS Safety Report 13307078 (Version 2)
Quarter: 2022Q4

REPORT INFORMATION
  Report Type: Spontaneous
  Country: CA (occurrence: None)
  Receive Date: 20170308
  Receipt Date: 20221021
  Transmission Date: 20230113
  Serious: Yes (Hospitalization, Other)
  Sender: FDA-Public Use
  Company Number: 2017SE22106

PATIENT
  Age: 24 Year
  Sex: Male
  Weight: 52.2 kg

DRUGS (11)
  1. QUETIAPINE FUMARATE [Suspect]
     Active Substance: QUETIAPINE FUMARATE
     Indication: Product used for unknown indication
     Dosage: UNK
     Route: 048
  2. VENLAFAXINE HYDROCHLORIDE [Suspect]
     Active Substance: VENLAFAXINE HYDROCHLORIDE
     Indication: Product used for unknown indication
     Dosage: UNK
     Route: 065
  3. AZATHIOPRINE [Concomitant]
     Active Substance: AZATHIOPRINE
     Dosage: 100.0MG UNKNOWN
     Route: 065
     Dates: end: 20161108
  4. AZATHIOPRINE [Concomitant]
     Active Substance: AZATHIOPRINE
     Dosage: 50.0MG UNKNOWN
     Route: 065
  5. CANNABIS SATIVA FLOWERING TOP [Concomitant]
     Active Substance: CANNABIS SATIVA FLOWERING TOP
     Dosage: UNK
     Route: 065
  6. CLONAZEPAM [Concomitant]
     Active Substance: CLONAZEPAM
     Dosage: UNK
     Route: 065
  7. DILTIAZEM [Concomitant]
     Active Substance: DILTIAZEM
     Dosage: TWO TIMES A DAY/THREE TIMES A DAY
     Route: 065
  8. GAVISCON [Concomitant]
     Active Substance: ALUMINUM HYDROXIDE\MAGNESIUM CARBONATE
     Route: 065
  9. PREDNISONE [Concomitant]
     Active Substance: PREDNISONE
     Route: 048
     Dates: start: 20170215
  10. PREDNISONE [Concomitant]
     Active Substance: PREDNISONE
     Route: 048
  11. SODIUM BICARBONATE/SODIUM ALGINATE [Concomitant]
     Dosage: UNK
     Route: 065

REACTIONS (10)
  - Agitation [Recovering/Resolving]
  - Crohn^s disease [Recovering/Resolving]
  - Gallbladder polyp [Recovering/Resolving]
  - Rectal fissure [Recovering/Resolving]
  - Drug withdrawal syndrome [Recovering/Resolving]
  - Poor quality sleep [Recovering/Resolving]
  - Odynophagia [Recovering/Resolving]
  - Cough [Recovering/Resolving]
  - Chest pain [Recovering/Resolving]
  - Anal incontinence [Recovering/Resolving]

NARRATIVE: CASE EVENT DATE: 20160301
